FAERS Safety Report 19025589 (Version 1)
Quarter: 2021Q1

REPORT INFORMATION
  Report Type: Report from Study
  Country: BR (occurrence: BR)
  Receive Date: 20210318
  Receipt Date: 20210318
  Transmission Date: 20210420
  Serious: Yes (Life-Threatening, Hospitalization, Other)
  Sender: FDA-Public Use
  Company Number: BR-TAKEDA-BR202025109

PATIENT
  Age: 28 Year
  Sex: Male
  Weight: 73 kg

DRUGS (3)
  1. HEMO?8R [Suspect]
     Active Substance: ANTIHEMOPHILIC FACTOR, HUMAN RECOMBINANT
     Dosage: 2000 INTERNATIONAL UNIT, 2/WEEK
     Route: 065
  2. HEMO?8R [Suspect]
     Active Substance: ANTIHEMOPHILIC FACTOR, HUMAN RECOMBINANT
     Dosage: 2000 UNK, 3/WEEK
     Route: 042
  3. HEMO?8R [Suspect]
     Active Substance: ANTIHEMOPHILIC FACTOR, HUMAN RECOMBINANT
     Indication: FACTOR VIII DEFICIENCY
     Dosage: UNK UNK, 3/WEEK
     Route: 065

REACTIONS (13)
  - Bedridden [Unknown]
  - Pain [Recovering/Resolving]
  - Upper limb fracture [Recovering/Resolving]
  - Overweight [Unknown]
  - Hypersensitivity [Recovering/Resolving]
  - Lower limb fracture [Recovering/Resolving]
  - Coma [Recovering/Resolving]
  - Bone loss [Recovering/Resolving]
  - Product availability issue [Unknown]
  - Pyrexia [Recovering/Resolving]
  - Haemorrhage [Recovering/Resolving]
  - Surgery [Unknown]
  - Weight decreased [Recovering/Resolving]

NARRATIVE: CASE EVENT DATE: 20201029
